FAERS Safety Report 7715870-9 (Version None)
Quarter: 2011Q3

REPORT INFORMATION
  Report Type: 
  Country: None (occurrence: None)
  Receive Date: 20110829
  Receipt Date: 20110829
  Transmission Date: 20111222
  Serious: Yes (Other)
  Sender: FDA-Public Use
  Company Number: None

PATIENT
  Age: 64 Year
  Sex: Female
  Weight: 79.378 kg

DRUGS (1)
  1. NITROFURATOIN -GENERIC MACROBID- [Suspect]
     Indication: CYSTITIS
     Dosage: 1 CAPSULE
     Route: 048
     Dates: start: 20110816, end: 20110817

REACTIONS (6)
  - URINARY TRACT INFECTION [None]
  - NAUSEA [None]
  - HEADACHE [None]
  - DYSSTASIA [None]
  - ACTIVITIES OF DAILY LIVING IMPAIRED [None]
  - MALAISE [None]
